FAERS Safety Report 17213969 (Version 1)
Quarter: 2020Q1

REPORT INFORMATION
  Report Type: Spontaneous
  Country: US (occurrence: US)
  Receive Date: 20191227
  Receipt Date: 20191227
  Transmission Date: 20200409
  Serious: No
  Sender: FDA-Public Use
  Company Number: None

PATIENT
  Age: 63 Year
  Sex: Female

DRUGS (1)
  1. LOSARTAN. [Suspect]
     Active Substance: LOSARTAN
     Route: 048
     Dates: start: 20191018, end: 20191221

REACTIONS (3)
  - Musculoskeletal chest pain [None]
  - Muscle tightness [None]
  - Abdominal discomfort [None]

NARRATIVE: CASE EVENT DATE: 20191018
